FAERS Safety Report 11737818 (Version 5)
Quarter: 2017Q2

REPORT INFORMATION
  Report Type: Report from Study
  Country: IT (occurrence: IT)
  Receive Date: 20151113
  Receipt Date: 20170420
  Transmission Date: 20170829
  Serious: Yes (Hospitalization)
  Sender: FDA-Public Use
  Company Number: IT-OTSUKA-2015_014025

PATIENT
  Age: 61 Year
  Sex: Male
  Weight: 64 kg

DRUGS (21)
  1. TOLVAPTAN [Suspect]
     Active Substance: TOLVAPTAN
     Dosage: 5 MG, QD
     Route: 048
     Dates: start: 20151118, end: 20151122
  2. TOLVAPTAN [Suspect]
     Active Substance: TOLVAPTAN
     Dosage: 7.5 MG, QD
     Route: 048
     Dates: start: 20151214, end: 20151214
  3. TOLVAPTAN [Suspect]
     Active Substance: TOLVAPTAN
     Dosage: 7.5 MG, QD
     Route: 048
     Dates: start: 20151022, end: 20151023
  4. TOLVAPTAN [Suspect]
     Active Substance: TOLVAPTAN
     Dosage: 5 MG, QD
     Route: 048
     Dates: start: 20151112, end: 20151112
  5. TOLVAPTAN [Suspect]
     Active Substance: TOLVAPTAN
     Dosage: 7.5 MG, QD
     Route: 048
     Dates: start: 20151212, end: 20151212
  6. LYRICA [Concomitant]
     Active Substance: PREGABALIN
     Indication: PAIN
     Dosage: UNK
     Route: 065
     Dates: start: 20151028
  7. CLEXANE [Concomitant]
     Active Substance: ENOXAPARIN SODIUM
     Indication: THROMBOSIS PROPHYLAXIS
     Dosage: UNK
     Route: 065
     Dates: start: 20151006
  8. CALCIUM GLUCONATE. [Concomitant]
     Active Substance: CALCIUM GLUCONATE
     Indication: HYPOCALCAEMIA
     Dosage: UNK
     Route: 065
     Dates: start: 20151106, end: 20160114
  9. TOLVAPTAN [Suspect]
     Active Substance: TOLVAPTAN
     Dosage: 7.5 MG, QD
     Route: 048
     Dates: start: 20151016, end: 20151019
  10. TOLVAPTAN [Suspect]
     Active Substance: TOLVAPTAN
     Dosage: 7.5 MG, QD
     Route: 048
     Dates: start: 20151106, end: 20151109
  11. TOLVAPTAN [Suspect]
     Active Substance: TOLVAPTAN
     Indication: HYPONATRAEMIA
     Dosage: 7.5 MG, QD
     Route: 048
     Dates: start: 20151029, end: 20151104
  12. PLAUNAC [Concomitant]
     Active Substance: OLMESARTAN MEDOXOMIL
     Indication: HYPERTENSION
     Dosage: UNK
     Route: 065
     Dates: start: 201110
  13. TOLVAPTAN [Suspect]
     Active Substance: TOLVAPTAN
     Indication: INAPPROPRIATE ANTIDIURETIC HORMONE SECRETION
     Dosage: 15 MG, QD
     Route: 048
     Dates: start: 20151011, end: 20151012
  14. TOLVAPTAN [Suspect]
     Active Substance: TOLVAPTAN
     Dosage: 3.75 MG, QD
     Route: 048
     Dates: start: 20151105, end: 20151105
  15. TOLVAPTAN [Suspect]
     Active Substance: TOLVAPTAN
     Dosage: 5 MG, QD
     Route: 048
     Dates: start: 20151114, end: 20151116
  16. DUROGESIC [Concomitant]
     Active Substance: FENTANYL
     Indication: PAIN
     Dosage: UNK
     Route: 065
     Dates: start: 20150716
  17. GRANULOKINE [Concomitant]
     Active Substance: FILGRASTIM
     Indication: LEUKOPENIA
     Dosage: UNK
     Route: 065
     Dates: start: 20151105
  18. TOLVAPTAN [Suspect]
     Active Substance: TOLVAPTAN
     Dosage: 7.5 MG, QD
     Route: 048
     Dates: start: 20151108, end: 20151110
  19. TOLVAPTAN [Suspect]
     Active Substance: TOLVAPTAN
     Dosage: 5 MG, QD
     Route: 048
     Dates: start: 20151218, end: 20151218
  20. PANTORC [Concomitant]
     Active Substance: PANTOPRAZOLE SODIUM
     Indication: GASTRITIS PROPHYLAXIS
     Dosage: UNK
     Route: 065
     Dates: start: 20151006
  21. DEPAKIN [Concomitant]
     Active Substance: VALPROATE SODIUM
     Indication: SUPPORTIVE CARE
     Dosage: UNK
     Route: 065
     Dates: start: 201510

REACTIONS (9)
  - Hyponatraemia [Recovered/Resolved]
  - Intestinal obstruction [Recovered/Resolved]
  - Transaminases increased [Not Recovered/Not Resolved]
  - Blood creatinine increased [Not Recovered/Not Resolved]
  - Anaemia [Recovered/Resolved]
  - Prescribed underdose [Unknown]
  - Somnolence [Not Recovered/Not Resolved]
  - Condition aggravated [Not Recovered/Not Resolved]
  - Blood alkaline phosphatase increased [Not Recovered/Not Resolved]

NARRATIVE: CASE EVENT DATE: 20151104
